FAERS Safety Report 13294432 (Version 2)
Quarter: 2017Q1

REPORT INFORMATION
  Report Type: Spontaneous
  Country: US (occurrence: US)
  Receive Date: 20170303
  Receipt Date: 20170327
  Transmission Date: 20170428
  Serious: Yes (Death, Hospitalization)
  Sender: FDA-Public Use
  Company Number: US-ALKERMES INC.-ALK-2017-000788

PATIENT
  Age: 27 Year
  Sex: Female
  Weight: 59.41 kg

DRUGS (3)
  1. ARISTADA [Suspect]
     Active Substance: ARIPIPRAZOLE LAUROXIL
     Dosage: 882 MG, QMO
     Route: 030
     Dates: start: 20170209
  2. ABILIFY [Concomitant]
     Active Substance: ARIPIPRAZOLE
     Indication: PRODUCT USED FOR UNKNOWN INDICATION
     Dosage: 30 MG, UNK
     Route: 048
  3. ARISTADA [Suspect]
     Active Substance: ARIPIPRAZOLE LAUROXIL
     Indication: SCHIZOPHRENIA
     Dosage: 662 MG, QMO
     Route: 030
     Dates: start: 2016

REACTIONS (4)
  - Condition aggravated [Recovered/Resolved]
  - Psychotic disorder [Unknown]
  - Drowning [Fatal]
  - Abnormal behaviour [Unknown]

NARRATIVE: CASE EVENT DATE: 20170214
